FAERS Safety Report 8005066-8 (Version None)
Quarter: 2011Q4

REPORT INFORMATION
  Report Type: 
  Country: None (occurrence: None)
  Receive Date: 20111223
  Receipt Date: 20111215
  Transmission Date: 20120403
  Serious: Yes (Hospitalization, Other)
  Sender: FDA-Public Use
  Company Number: DE-B.I. PHARMACEUTICALS,INC./RIDGEFIELD-2011-DE-06805DE

PATIENT
  Sex: Female
  Weight: 80 kg

DRUGS (24)
  1. PRADAXA [Suspect]
     Indication: ATRIAL FIBRILLATION
     Dosage: 220 MG
     Dates: start: 20111024, end: 20111206
  2. NOVALGIN [Concomitant]
     Dosage: 20 GTT PRN.
  3. PANOTZOL [Concomitant]
     Dosage: 40 MG
  4. HEPARIN [Concomitant]
     Dosage: 15000 U
     Route: 058
  5. AMITRIPTYLINE HCL [Concomitant]
     Dosage: 10 MG
  6. HYDROCHLOROTHIAZIDE [Concomitant]
     Dosage: 25 MG
  7. NEBIVOLOL HCL [Concomitant]
     Dosage: 5 MG
  8. VIANI DISC [Concomitant]
     Dosage: 250/50
  9. LORAZEPAM [Concomitant]
     Dosage: 1 MG
  10. TORSEMIDE [Concomitant]
     Dosage: 30 MG
  11. CALCIUM [Concomitant]
     Dosage: 1 ANZ
  12. GABAPENTIN [Concomitant]
     Dosage: 600 MG
  13. ALENDRONIC  ACID [Concomitant]
     Dosage: 10 MG
  14. LACTULOSE [Concomitant]
     Dosage: PRN.
  15. CITALOPRAM [Concomitant]
     Dosage: 20 MG
  16. FENTANYL PLASTER [Concomitant]
     Dosage: EVERY 3 DAYS
  17. DIGIMERCK MINOR [Concomitant]
     Dosage: 0.07 MG
  18. OMEPRAZOLE [Concomitant]
     Dosage: 40 MG
  19. NOVA TR [Concomitant]
     Dosage: 30-30-30-30
  20. L-THYROCIN [Concomitant]
     Dosage: 100 MCG
  21. RAMIPRIL [Concomitant]
     Dosage: 2.5 MG
  22. PRADAXA [Suspect]
  23. SPIROLACTON [Concomitant]
     Dosage: 25 MG
  24. TORSEMIDE [Concomitant]
     Dosage: 10 MG

REACTIONS (11)
  - HAEMARTHROSIS [None]
  - ASTHENIA [None]
  - UPPER GASTROINTESTINAL HAEMORRHAGE [None]
  - HERNIA [None]
  - CYST [None]
  - DIVERTICULUM INTESTINAL [None]
  - FATIGUE [None]
  - BACK PAIN [None]
  - MELAENA [None]
  - DYSPNOEA EXERTIONAL [None]
  - BLOOD CREATININE INCREASED [None]
